FAERS Safety Report 24625417 (Version 1)
Quarter: 2024Q4

REPORT INFORMATION
  Report Type: Spontaneous
  Country: US (occurrence: None)
  Receive Date: 20241115
  Receipt Date: 20241115
  Transmission Date: 20250114
  Serious: No
  Sender: Public
  Company Number: None

PATIENT
  Age: 75 Year
  Sex: Male
  Weight: 136 kg

DRUGS (3)
  1. APIXABAN [Suspect]
     Active Substance: APIXABAN
     Indication: Atrial fibrillation
     Dosage: ORAL
     Route: 048
  2. CLOPIDOGREL [Suspect]
     Active Substance: CLOPIDOGREL BISULFATE
  3. ANDEXANET ALFA [Suspect]
     Active Substance: ANDEXANET ALFA

REACTIONS (5)
  - Subdural haematoma [None]
  - Respiratory distress [None]
  - Cardiac arrest [None]
  - Nervous system disorder [None]
  - Vital functions abnormal [None]

NARRATIVE: CASE EVENT DATE: 20240619
